FAERS Safety Report 6983107-4 (Version None)
Quarter: 2010Q3

REPORT INFORMATION
  Report Type: 
  Country: None (occurrence: None)
  Receive Date: 20100914
  Receipt Date: 20100615
  Transmission Date: 20110219
  Serious: Yes (Other)
  Sender: FDA-Public Use
  Company Number: US-PFIZER INC-2010062332

PATIENT
  Sex: Female
  Weight: 79.37 kg

DRUGS (10)
  1. LYRICA [Suspect]
     Indication: NEUROPATHY PERIPHERAL
     Dosage: 50 MG, 2X/DAY
     Dates: start: 20100516
  2. LYRICA [Suspect]
     Indication: DIABETIC NEUROPATHY
  3. DARVOCET [Concomitant]
     Indication: PAIN
     Dosage: 100/650 MG, 4X/DAILY
  4. NEXIUM [Concomitant]
     Indication: GASTRIC DISORDER
     Dosage: 40 MG, 1X/DAY
  5. VALSARTAN [Concomitant]
     Indication: HYPERTENSION
     Dosage: 160 MG, 2X/DAY
  6. METOPROLOL [Concomitant]
     Indication: CARDIAC DISORDER
     Dosage: 50 MG, 2X/DAY
  7. EVISTA [Concomitant]
     Indication: OSTEOPOROSIS
     Dosage: 60 MG, UNK
  8. METFORMIN HYDROCHLORIDE/SITAGLIPTIN [Concomitant]
     Indication: DIABETES MELLITUS
     Dosage: 500 MG, 2X/DAY
  9. NAMENDA [Concomitant]
     Indication: MEMORY IMPAIRMENT
     Dosage: 10 MG, 2X/DAY
  10. BENFOTIAMINE [Concomitant]
     Indication: PAIN
     Dosage: 150 MG, 2X/DAY

REACTIONS (3)
  - CONFUSIONAL STATE [None]
  - DIZZINESS [None]
  - FEELING DRUNK [None]
